FAERS Safety Report 17936573 (Version 1)
Quarter: 2020Q2

REPORT INFORMATION
  Report Type: Spontaneous
  Country: RU (occurrence: RU)
  Receive Date: 20200624
  Receipt Date: 20200624
  Transmission Date: 20200714
  Serious: Yes (Hospitalization, Other)
  Sender: FDA-Public Use
  Company Number: RU-BAYER-2020-125615

PATIENT
  Age: 36 Year
  Sex: Female

DRUGS (1)
  1. QLAIRA [Suspect]
     Active Substance: DIENOGEST\ESTRADIOL VALERATE
     Indication: CONTRACEPTION
     Dosage: 1 DF, QD
     Route: 048

REACTIONS (4)
  - Suspected product quality issue [None]
  - Pregnancy on oral contraceptive [Recovered/Resolved]
  - Abortion induced [None]
  - Drug ineffective [None]

NARRATIVE: CASE EVENT DATE: 201912
